FAERS Safety Report 12267848 (Version 5)
Quarter: 2016Q3

REPORT INFORMATION
  Report Type: Report from Study
  Country: AT (occurrence: AT)
  Receive Date: 20160414
  Receipt Date: 20160930
  Transmission Date: 20161109
  Serious: Yes (Hospitalization, Other)
  Sender: FDA-Public Use
  Company Number: AT-INCYTE CORPORATION-2014IN003239

PATIENT
  Age: 74 Year
  Sex: Male
  Weight: 95 kg

DRUGS (52)
  1. THROMBO ASS [Concomitant]
     Active Substance: ASPIRIN
     Dosage: UNK
     Route: 065
     Dates: start: 20150921, end: 20150927
  2. BISOPROLOL [Concomitant]
     Active Substance: BISOPROLOL
     Dosage: 0.5 DF, QD (0-0-1/2)
     Route: 065
     Dates: start: 20120316
  3. LASIX [Concomitant]
     Active Substance: FUROSEMIDE
     Indication: OEDEMA PERIPHERAL
     Dosage: 40 MG
     Route: 065
     Dates: start: 20120709
  4. AUGMENTIN [Concomitant]
     Active Substance: AMOXICILLIN\CLAVULANATE POTASSIUM
     Indication: PYREXIA
     Dosage: 1 G, BID FURTHER ON 7 DAYS
     Route: 065
     Dates: start: 20150305, end: 20150321
  5. DANCOR [Concomitant]
     Active Substance: NICORANDIL
     Indication: CORONARY ARTERY DISEASE
     Dosage: UNK
     Route: 065
     Dates: start: 20100531, end: 20150420
  6. AVELOX [Concomitant]
     Active Substance: MOXIFLOXACIN HYDROCHLORIDE
     Route: 065
     Dates: start: 20150701, end: 20150705
  7. MEXALEN [Concomitant]
     Active Substance: ACETAMINOPHEN
     Indication: PYREXIA
     Dosage: UNK
     Route: 065
     Dates: start: 20150303, end: 20150304
  8. LEVOFLOXACIN. [Concomitant]
     Active Substance: LEVOFLOXACIN
     Route: 065
  9. LEVOFLOXACIN. [Concomitant]
     Active Substance: LEVOFLOXACIN
     Route: 065
  10. SORTIS [Concomitant]
     Active Substance: ATORVASTATIN
     Indication: HYPERCHOLESTEROLAEMIA
     Dosage: 80 MG
     Route: 065
     Dates: start: 20100511
  11. BISOPROLOL [Concomitant]
     Active Substance: BISOPROLOL
     Indication: HYPERTENSION
     Dosage: 2.5 MG
     Route: 065
     Dates: start: 20120316
  12. SPIROBENE [Concomitant]
     Active Substance: SPIRONOLACTONE
     Indication: HYPERTENSION
     Dosage: UNK
     Route: 065
     Dates: start: 20140325
  13. HYDROXYUREA. [Concomitant]
     Active Substance: HYDROXYUREA
     Indication: PRODUCT USED FOR UNKNOWN INDICATION
     Dosage: 500 MG, UNK
     Route: 065
     Dates: end: 20150730
  14. APREDNISLON [Concomitant]
     Active Substance: PREDNISOLONE
     Dosage: UNK
     Route: 065
     Dates: start: 20150217, end: 20150217
  15. RINGER LACTAT                      /03352501/ [Concomitant]
     Indication: DEHYDRATION
     Dosage: UNK
     Dates: start: 20150309, end: 20150407
  16. RINGER LACTAT                      /03352501/ [Concomitant]
     Dosage: UNK
     Route: 065
     Dates: start: 20150407, end: 20150407
  17. NEURONTIN [Concomitant]
     Active Substance: GABAPENTIN
     Indication: NEURALGIA
     Dosage: UNK
     Route: 065
     Dates: start: 20160113
  18. THROMBO ASS [Concomitant]
     Active Substance: ASPIRIN
     Indication: THROMBOSIS
     Dosage: 100 MG, QD
     Route: 065
     Dates: start: 20100513, end: 20141221
  19. THROMBO ASS [Concomitant]
     Active Substance: ASPIRIN
     Dosage: UNK
     Route: 065
     Dates: start: 20150312, end: 20150427
  20. APREDNISLON [Concomitant]
     Active Substance: PREDNISOLONE
     Dosage: UNK
     Route: 065
     Dates: start: 20141210, end: 20141214
  21. RINGER LACTAT                      /03352501/ [Concomitant]
     Dosage: UNK
     Route: 065
     Dates: start: 20150330, end: 20150330
  22. AVELOX [Concomitant]
     Active Substance: MOXIFLOXACIN HYDROCHLORIDE
     Indication: PYREXIA
     Dosage: UNK
     Route: 065
     Dates: start: 20150701, end: 20150813
  23. FAMVIR//FAMCICLOVIR [Concomitant]
     Indication: ORAL HERPES
     Dosage: UNK
     Route: 065
     Dates: start: 20150730, end: 20150819
  24. LIDAPRIM [Concomitant]
     Indication: INFECTION
     Dosage: UNK
     Route: 065
     Dates: start: 20150907, end: 20150913
  25. UROSIN [Concomitant]
     Active Substance: ALLOPURINOL
     Indication: PROPHYLAXIS
     Dosage: 30 MG, QD
     Route: 065
     Dates: start: 20141121, end: 20141222
  26. AUGMENTIN [Concomitant]
     Active Substance: AMOXICILLIN\CLAVULANATE POTASSIUM
     Indication: PRODUCT USED FOR UNKNOWN INDICATION
     Dosage: UNK
     Dates: start: 20150914, end: 20150920
  27. LEVOFLOXACIN. [Concomitant]
     Active Substance: LEVOFLOXACIN
     Indication: HYPERSENSITIVITY
     Route: 065
  28. THROMBO ASS [Concomitant]
     Active Substance: ASPIRIN
     Dosage: UNK
     Route: 065
     Dates: start: 20100531, end: 20141221
  29. THROMBO ASS [Concomitant]
     Active Substance: ASPIRIN
     Dosage: UNK
     Route: 065
     Dates: start: 20150522, end: 20150723
  30. EXJADE [Concomitant]
     Active Substance: DEFERASIROX
     Indication: IRON OVERLOAD
     Dosage: 500 MG, PRN (IF NEEDED)
     Route: 065
     Dates: start: 20150429
  31. NOVALGIN [Concomitant]
     Active Substance: METAMIZOLE SODIUM
     Indication: CHEST PAIN
     Dosage: UNK
     Route: 065
     Dates: start: 20150914, end: 20150920
  32. PLAVIX [Concomitant]
     Active Substance: CLOPIDOGREL BISULFATE
     Indication: CORONARY ARTERY DISEASE
     Dosage: UNK
     Route: 065
     Dates: start: 20100531, end: 20140622
  33. APREDNISLON [Concomitant]
     Active Substance: PREDNISOLONE
     Dosage: UNK
     Route: 065
     Dates: start: 20141030, end: 20141103
  34. APREDNISLON [Concomitant]
     Active Substance: PREDNISOLONE
     Dosage: UNK
     Route: 065
     Dates: start: 20150102, end: 20150106
  35. NOVALGIN [Concomitant]
     Active Substance: METAMIZOLE SODIUM
     Dosage: UNK
     Route: 065
     Dates: start: 20151202
  36. RAMIPRIL. [Concomitant]
     Active Substance: RAMIPRIL
     Indication: HYPERTENSION
     Dosage: UNK
     Route: 065
     Dates: start: 20100531, end: 20150421
  37. APREDNISLON [Concomitant]
     Active Substance: PREDNISOLONE
     Dosage: UNK
     Route: 065
     Dates: start: 20150127, end: 20150131
  38. AVELOX [Concomitant]
     Active Substance: MOXIFLOXACIN HYDROCHLORIDE
     Indication: ORAL HERPES
     Dosage: UNK
     Route: 065
     Dates: start: 20150730, end: 20150813
  39. LEVOFLOXACIN. [Concomitant]
     Active Substance: LEVOFLOXACIN
     Route: 065
  40. THROMBO ASS [Concomitant]
     Active Substance: ASPIRIN
     Dosage: UNK
     Dates: start: 20160224
  41. NOVALGIN [Concomitant]
     Active Substance: METAMIZOLE SODIUM
     Indication: ARTHRALGIA
     Dosage: 500 MG, TID
     Route: 065
     Dates: start: 20141120, end: 20150630
  42. APREDNISLON [Concomitant]
     Active Substance: PREDNISOLONE
     Dosage: UNK
     Route: 065
     Dates: start: 20150324, end: 20150327
  43. TRAMAL [Concomitant]
     Active Substance: TRAMADOL
     Indication: ARTHRALGIA
     Dosage: UNK UNK, PRN
     Route: 065
     Dates: start: 20141121, end: 20150630
  44. UROSIN [Concomitant]
     Active Substance: ALLOPURINOL
     Dosage: UNK
     Route: 065
     Dates: start: 20150305
  45. JAKAFI [Suspect]
     Active Substance: RUXOLITINIB
     Indication: MYELOFIBROSIS
     Dosage: 40 MG, QD
     Route: 048
     Dates: start: 20120319
  46. ERYTHROCYTES [Concomitant]
     Active Substance: HUMAN RED BLOOD CELL
     Indication: PRODUCT USED FOR UNKNOWN INDICATION
     Dosage: 4 CONCETRATES
     Route: 065
     Dates: start: 20151030, end: 20151031
  47. AUGMENTIN [Concomitant]
     Active Substance: AMOXICILLIN\CLAVULANATE POTASSIUM
     Indication: INFLAMMATION
     Dosage: UNK
     Route: 065
     Dates: start: 20150914, end: 20150920
  48. APREDNISLON [Concomitant]
     Active Substance: PREDNISOLONE
     Indication: PROPHYLAXIS
     Dosage: UNK
     Dates: start: 20141030, end: 20150327
  49. PANTOLOC//PANTOPRAZOLE SODIUM SESQUIHYDRATE [Concomitant]
     Active Substance: PANTOPRAZOLE SODIUM
     Indication: GASTRIC DISORDER
     Dosage: UNK UNK, PRN
     Route: 065
     Dates: start: 20140627
  50. RINGER LACTAT                      /03352501/ [Concomitant]
     Dosage: UNK
     Route: 065
     Dates: start: 20150309, end: 20150309
  51. THROMBO ASS [Concomitant]
     Active Substance: ASPIRIN
     Dosage: 100 MG, QD
     Route: 065
     Dates: start: 20141230, end: 20150101
  52. EXJADE [Concomitant]
     Active Substance: DEFERASIROX
     Dosage: 500 MG, PRN (IF NEEDED)
     Route: 065
     Dates: start: 20150429

REACTIONS (23)
  - Dyspnoea [Unknown]
  - Diffuse large B-cell lymphoma [Recovering/Resolving]
  - Pulmonary congestion [Unknown]
  - Hyperlipidaemia [Unknown]
  - Chest pain [Recovering/Resolving]
  - Arteriosclerosis [Unknown]
  - Blood alkaline phosphatase increased [Unknown]
  - Coronary artery disease [Unknown]
  - Reticulocyte count increased [Unknown]
  - Haematoma [Recovered/Resolved]
  - Acute myeloid leukaemia [Unknown]
  - Anaemia [Unknown]
  - Second primary malignancy [Recovering/Resolving]
  - Platelet count increased [Unknown]
  - Activated partial thromboplastin time prolonged [Unknown]
  - Heart valve stenosis [Unknown]
  - Peripheral vascular disorder [Unknown]
  - Myocardial ischaemia [Unknown]
  - Osteitis [Unknown]
  - Haemorrhage [Recovered/Resolved]
  - Osteonecrosis [Recovered/Resolved]
  - Blood uric acid increased [Unknown]
  - Prothrombin time prolonged [Unknown]

NARRATIVE: CASE EVENT DATE: 20140906
